FAERS Safety Report 5712756-6 (Version None)
Quarter: 2008Q2

REPORT INFORMATION
  Report Type: 
  Country: None (occurrence: None)
  Receive Date: 20080422
  Receipt Date: 20080418
  Transmission Date: 20081010
  Serious: Yes (Life-Threatening, Hospitalization)
  Sender: FDA-Public Use
  Company Number: JP-BRISTOL-MYERS SQUIBB COMPANY-14131973

PATIENT
  Age: 60 Year
  Sex: Female

DRUGS (5)
  1. PARAPLATIN [Suspect]
     Indication: LUNG ADENOCARCINOMA
     Route: 041
     Dates: start: 20060904, end: 20070823
  2. TAXOL [Suspect]
     Indication: LUNG ADENOCARCINOMA
     Route: 041
     Dates: start: 20060904, end: 20070823
  3. POLARAMINE [Concomitant]
     Route: 041
     Dates: start: 20060904, end: 20070830
  4. FAMOTIDINE [Concomitant]
     Route: 041
     Dates: start: 20060904, end: 20070830
  5. NASEA [Concomitant]
     Route: 041
     Dates: start: 20060904, end: 20070823

REACTIONS (2)
  - PORTAL VEIN THROMBOSIS [None]
  - PULMONARY ARTERY THROMBOSIS [None]
